FAERS Safety Report 7987853-5 (Version None)
Quarter: 2011Q4

REPORT INFORMATION
  Report Type: 
  Country: None (occurrence: None)
  Receive Date: 20111216
  Receipt Date: 20110511
  Transmission Date: 20120403
  Serious: No
  Sender: FDA-Public Use
  Company Number: US-BRISTOL-MYERS SQUIBB COMPANY-15736309

PATIENT
  Age: 60 Year
  Sex: Male

DRUGS (2)
  1. ANTIHYPERTENSIVE [Concomitant]
  2. ABILIFY [Suspect]
     Indication: DEPRESSION
     Dosage: 2.5MG FOR ONE WEEK. THEN DOSE INCREASED TO 5MG.

REACTIONS (1)
  - OEDEMA [None]
